FAERS Safety Report 5645704-8 (Version None)
Quarter: 2008Q1

REPORT INFORMATION
  Report Type: 
  Country: None (occurrence: None)
  Receive Date: 20080229
  Receipt Date: 20080204
  Transmission Date: 20080703
  Serious: No
  Sender: FDA-Public Use
  Company Number: US-BOEHRINGER INGELHEIM GMBH, GERMANY-2008-BP-01655BP

PATIENT
  Age: 95 Year
  Sex: Female

DRUGS (3)
  1. ZANTAC [Suspect]
     Indication: GASTROOESOPHAGEAL REFLUX DISEASE
     Route: 048
     Dates: start: 20080101, end: 20080202
  2. LIPITOR [Concomitant]
  3. ASPIRIN [Concomitant]

REACTIONS (4)
  - FALL [None]
  - FEELING ABNORMAL [None]
  - HEADACHE [None]
  - STOMACH DISCOMFORT [None]
